FAERS Safety Report 9396305 (Version 2)
Quarter: 2013Q3

REPORT INFORMATION
  Report Type: Spontaneous
  Country: DE (occurrence: None)
  Receive Date: 20130701
  Receipt Date: 20130717
  Transmission Date: 20140515
  Serious: Yes (Death, Hospitalization)
  Sender: FDA-Public Use
  Company Number: 2013036676

PATIENT
  Age: 64 Year
  Sex: Male

DRUGS (8)
  1. PRIVIGEN [Suspect]
     Indication: IMMUNE THROMBOCYTOPENIC PURPURA
     Dosage: 30 G, INFUSION RATE 25-250 ML/MIN, INTRAVENOUS (NOT OTHEWISE SPECIFIED)
     Route: 042
     Dates: start: 20130408
  2. PREDNISOLONE (PREDNISOLONE) [Concomitant]
  3. AMLODIN [Concomitant]
  4. BISOPROLOL [Concomitant]
  5. PANTOPRAZOLE [Concomitant]
  6. TORASEMIDE [Concomitant]
  7. FORMOTEROL [Concomitant]
  8. TIOTROPIUM BROMIDE [Concomitant]

REACTIONS (10)
  - Multi-organ failure [None]
  - Sepsis [None]
  - Ischaemic cerebral infarction [None]
  - Aphasia [None]
  - Hemiparesis [None]
  - Hemianopia [None]
  - Dysarthria [None]
  - Neurologic neglect syndrome [None]
  - Aspiration [None]
  - Dysphagia [None]
